FAERS Safety Report 9026455 (Version 1)
Quarter: 2013Q1

REPORT INFORMATION
  Report Type: Spontaneous
  Country: DE (occurrence: DE)
  Receive Date: 20130123
  Receipt Date: 20130123
  Transmission Date: 20140127
  Serious: No
  Sender: FDA-Public Use
  Company Number: DE-JNJFOC-20130103225

PATIENT
  Sex: Female

DRUGS (2)
  1. DUROGESIC SMAT [Suspect]
     Indication: PAIN
     Route: 062
     Dates: start: 20130106, end: 20130106
  2. DUROGESIC SMAT [Suspect]
     Indication: PAIN
     Route: 062

REACTIONS (3)
  - Expired drug administered [Recovering/Resolving]
  - Nausea [Recovering/Resolving]
  - Somnolence [Recovering/Resolving]
